FAERS Safety Report 8619765-8 (Version None)
Quarter: 2012Q3

REPORT INFORMATION
  Report Type: 
  Country: None (occurrence: None)
  Receive Date: 20120824
  Receipt Date: 20120813
  Transmission Date: 20120928
  Serious: Yes (Other)
  Sender: FDA-Public Use
  Company Number: US-PERRIGO-12US007084

PATIENT
  Sex: Female
  Weight: 38.095 kg

DRUGS (1)
  1. RID MOUSSE [Suspect]
     Indication: LICE INFESTATION
     Dosage: 2-3 OUNCES, SINGLE
     Route: 061
     Dates: start: 20120808, end: 20120808

REACTIONS (8)
  - OCULAR HYPERAEMIA [None]
  - PHOTOPHOBIA [None]
  - ACCIDENTAL EXPOSURE [None]
  - EYE IRRITATION [None]
  - EYE PAIN [None]
  - EYE BURNS [None]
  - EYE SWELLING [None]
  - CORNEAL LESION [None]
